FAERS Safety Report 16157617 (Version 2)
Quarter: 2019Q2

REPORT INFORMATION
  Report Type: Report from Study
  Country: IE (occurrence: IE)
  Receive Date: 20190404
  Receipt Date: 20190430
  Transmission Date: 20190711
  Serious: Yes (Hospitalization, Other)
  Sender: FDA-Public Use
  Company Number: IE-BAYER-2018-228122

PATIENT
  Age: 61 Year
  Sex: Female
  Weight: 42.7 kg

DRUGS (28)
  1. COPANLISIB. [Suspect]
     Active Substance: COPANLISIB
     Indication: B-CELL LYMPHOMA
     Dosage: 60 MG
     Dates: start: 20181107, end: 20181107
  2. RITUXIMAB. [Suspect]
     Active Substance: RITUXIMAB
     Indication: B-CELL LYMPHOMA
     Dosage: 307 MG
     Route: 042
     Dates: start: 20181022, end: 20181022
  3. NORMAL SALINE [Concomitant]
     Active Substance: SODIUM CHLORIDE
     Indication: HYPERGLYCAEMIA
     Dosage: 1000 ML
     Route: 042
     Dates: start: 20181031, end: 20181031
  4. NORMAL SALINE [Concomitant]
     Active Substance: SODIUM CHLORIDE
     Indication: HYPERGLYCAEMIA
     Dosage: 1000 ML
     Route: 042
     Dates: start: 20181212, end: 20181212
  5. ONDANSETRON HYDROCHLORIDE. [Concomitant]
     Active Substance: ONDANSETRON HYDROCHLORIDE
     Indication: VOMITING
     Dosage: 8 MG
     Route: 042
     Dates: start: 20181107, end: 20181107
  6. ONDANSETRON HYDROCHLORIDE. [Concomitant]
     Active Substance: ONDANSETRON HYDROCHLORIDE
     Indication: VOMITING
     Dosage: 16 UNK
     Route: 048
     Dates: start: 20181022, end: 20181029
  7. NORMAL SALINE [Concomitant]
     Active Substance: SODIUM CHLORIDE
     Indication: HYPERGLYCAEMIA
     Dosage: 1000 ML
     Route: 042
     Dates: start: 20181031, end: 20181031
  8. VALTREX [Concomitant]
     Active Substance: VALACYCLOVIR HYDROCHLORIDE
     Indication: ANTIVIRAL TREATMENT
     Dosage: 500 MG
     Route: 048
     Dates: start: 20181022
  9. METFORMIN [Concomitant]
     Active Substance: METFORMIN HYDROCHLORIDE
     Indication: BLOOD GLUCOSE INCREASED
     Dosage: 500 UNK
     Route: 048
     Dates: start: 20181110, end: 20181113
  10. NORMAL SALINE [Concomitant]
     Active Substance: SODIUM CHLORIDE
     Indication: HYPERGLYCAEMIA
     Dosage: 1000 ML
     Route: 042
     Dates: start: 20181121, end: 20181121
  11. NORMAL SALINE [Concomitant]
     Active Substance: SODIUM CHLORIDE
     Indication: HYPERGLYCAEMIA
     Dosage: 1000 ML
     Route: 042
     Dates: start: 20181122, end: 20181122
  12. RITUXIMAB. [Suspect]
     Active Substance: RITUXIMAB
     Indication: B-CELL LYMPHOMA
     Dosage: 307 MG
     Route: 042
     Dates: start: 20181114, end: 20181114
  13. LANSOPRAZOL [Concomitant]
     Active Substance: LANSOPRAZOLE
     Dosage: 30 MG
     Route: 048
     Dates: start: 20181022
  14. ONDANSETRON [Concomitant]
     Active Substance: ONDANSETRON
     Indication: ANTIEMETIC SUPPORTIVE CARE
     Dosage: 16 MG
     Route: 048
     Dates: start: 20181022
  15. METFORMIN [Concomitant]
     Active Substance: METFORMIN HYDROCHLORIDE
     Indication: BLOOD GLUCOSE INCREASED
     Dosage: 500 MG, BID
     Route: 048
     Dates: start: 20181106, end: 20181109
  16. ALLOPURINOL [ALLOPURINOL SODIUM] [Concomitant]
     Indication: BLOOD URIC ACID ABNORMAL
     Dosage: 300 MG
     Route: 048
     Dates: start: 20181022, end: 20181108
  17. ZOFRAN [Concomitant]
     Active Substance: ONDANSETRON HYDROCHLORIDE
     Indication: VOMITING
     Dosage: 8 MG
     Route: 042
     Dates: start: 20181107, end: 20181107
  18. ENOXAPARIN [Concomitant]
     Active Substance: ENOXAPARIN
     Dosage: 20 MG, QD
     Route: 058
     Dates: start: 20190117
  19. COPANLISIB. [Suspect]
     Active Substance: COPANLISIB
     Indication: B-CELL LYMPHOMA
     Dosage: 60 MG
     Dates: start: 20181031, end: 20181031
  20. RITUXIMAB. [Suspect]
     Active Substance: RITUXIMAB
     Indication: B-CELL LYMPHOMA
     Dosage: 307 MG
     Route: 042
     Dates: start: 20181107, end: 20181107
  21. ATORVASTATIN [Concomitant]
     Active Substance: ATORVASTATIN
     Indication: BLOOD CHOLESTEROL ABNORMAL
     Dosage: 20 MG
     Route: 048
     Dates: start: 20181022
  22. NORMAL SALINE [Concomitant]
     Active Substance: SODIUM CHLORIDE
     Indication: HYPOKALAEMIA
     Dosage: 1000 ML
     Route: 042
     Dates: start: 20181120, end: 20181120
  23. NORMAL SALINE [Concomitant]
     Active Substance: SODIUM CHLORIDE
     Indication: HYPERGLYCAEMIA
     Dosage: 1000 ML
     Route: 042
     Dates: start: 20181211, end: 20181211
  24. AMOXICILLIN. [Concomitant]
     Active Substance: AMOXICILLIN
     Indication: LOWER RESPIRATORY TRACT INFECTION
     Dosage: 500 MG
     Route: 048
     Dates: start: 20181212, end: 20181217
  25. COPANLISIB. [Suspect]
     Active Substance: COPANLISIB
     Indication: B-CELL LYMPHOMA
     Dosage: 60 MG
     Dates: start: 20181022, end: 20181022
  26. RITUXIMAB. [Suspect]
     Active Substance: RITUXIMAB
     Indication: B-CELL LYMPHOMA
     Dosage: 307 MG
     Route: 042
     Dates: start: 20181031, end: 20181031
  27. ALLOPURINOL [ALLOPURINOL SODIUM] [Concomitant]
     Indication: BLOOD URIC ACID ABNORMAL
     Dosage: 100 MG
     Route: 048
     Dates: start: 20181109, end: 20181127
  28. NORMAL SALINE [Concomitant]
     Active Substance: SODIUM CHLORIDE
     Indication: HYPERGLYCAEMIA
     Dosage: 1000 ML
     Route: 042
     Dates: start: 20181124, end: 20181124

REACTIONS (4)
  - General physical health deterioration [Recovered/Resolved]
  - General physical health deterioration [Recovered/Resolved]
  - Colitis microscopic [Recovered/Resolved]
  - General physical health deterioration [Recovered/Resolved]

NARRATIVE: CASE EVENT DATE: 20181120
